FAERS Safety Report 13406184 (Version 1)
Quarter: 2017Q2

REPORT INFORMATION
  Report Type: Spontaneous
  Country: PL (occurrence: PL)
  Receive Date: 20170405
  Receipt Date: 20170405
  Transmission Date: 20170830
  Serious: Yes (Other)
  Sender: FDA-Public Use
  Company Number: PL-JNJFOC-20170402727

PATIENT
  Sex: Female

DRUGS (1)
  1. ORTHO EVRA [Suspect]
     Active Substance: ETHINYL ESTRADIOL\NORELGESTROMIN
     Indication: PRODUCT USED FOR UNKNOWN INDICATION
     Dosage: (1 PATCH A WEEK FOR 3 WEEKS, 1 WEEK OF BREAK)
     Route: 065

REACTIONS (3)
  - Pain in extremity [Unknown]
  - Angina pectoris [Unknown]
  - Electrocardiogram abnormal [Unknown]
